FAERS Safety Report 6749937-9 (Version None)
Quarter: 2010Q2

REPORT INFORMATION
  Report Type: 
  Country: None (occurrence: None)
  Receive Date: 20100601
  Receipt Date: 20100526
  Transmission Date: 20101027
  Serious: Yes (Death)
  Sender: FDA-Public Use
  Company Number: GB-JNJFOC-20100502695

PATIENT
  Sex: Female
  Weight: 65 kg

DRUGS (4)
  1. DARUNAVIR [Suspect]
     Indication: HIV INFECTION
     Route: 048
  2. KIVEXA [Suspect]
     Indication: HIV INFECTION
     Route: 048
  3. CITALOPRAM HYDROBROMIDE [Concomitant]
     Indication: DEPRESSION
     Route: 048
     Dates: start: 20091117
  4. RITONAVIR [Concomitant]
     Indication: HIV INFECTION
     Route: 048
     Dates: start: 20090608

REACTIONS (1)
  - CARDIAC ARREST [None]
